FAERS Safety Report 9675023 (Version 1)
Quarter: 2013Q4

REPORT INFORMATION
  Report Type: Spontaneous
  Country: US (occurrence: US)
  Receive Date: 20131107
  Receipt Date: 20131107
  Transmission Date: 20140711
  Serious: Yes (Other)
  Sender: FDA-Public Use
  Company Number: US-TEVA-442514USA

PATIENT
  Sex: Female

DRUGS (1)
  1. COPAXONE [Suspect]
     Indication: MULTIPLE SCLEROSIS
     Dates: start: 201201

REACTIONS (6)
  - Suicidal ideation [Recovered/Resolved]
  - Heart rate increased [Unknown]
  - Flushing [Unknown]
  - Chest pain [Unknown]
  - Panic attack [Unknown]
  - Injection site pain [Unknown]
